FAERS Safety Report 6090928-1 (Version None)
Quarter: 2009Q1

REPORT INFORMATION
  Report Type: 
  Country: None (occurrence: None)
  Receive Date: 20090224
  Receipt Date: 20090130
  Transmission Date: 20090719
  Serious: Yes (Death)
  Sender: FDA-Public Use
  Company Number: US-TYCO HEALTHCARE/MALLINCKRODT-T200900273

PATIENT
  Age: 30 Year
  Sex: Female

DRUGS (4)
  1. OXYCODONE [Suspect]
  2. AMPHETAMINE AND DEXTROAMPHETAMINE SALTS [Suspect]
  3. COCAINE [Suspect]
  4. BENZODIAZEPINE DERIVATIVES [Suspect]

REACTIONS (1)
  - COMPLETED SUICIDE [None]
